FAERS Safety Report 16904954 (Version 2)
Quarter: 2019Q4

REPORT INFORMATION
  Report Type: Spontaneous
  Country: JP (occurrence: JP)
  Receive Date: 20191010
  Receipt Date: 20191125
  Transmission Date: 20200122
  Serious: No
  Sender: FDA-Public Use
  Company Number: JP-BAUSCH-BL-2019-055746

PATIENT
  Age: 72 Year
  Sex: Male
  Weight: 61 kg

DRUGS (22)
  1. CALCIUM FOLINATE [Suspect]
     Active Substance: LEUCOVORIN CALCIUM
     Dosage: ONCE
     Route: 065
     Dates: start: 20181129, end: 20181129
  2. PANITUMUMAB [Concomitant]
     Active Substance: PANITUMUMAB
     Indication: RECTAL CANCER
     Dates: start: 201704, end: 201810
  3. CALCIUM FOLINATE [Suspect]
     Active Substance: LEUCOVORIN CALCIUM
     Indication: RECTAL CANCER
     Dosage: ONCE
     Route: 065
     Dates: start: 20181018, end: 20181018
  4. CALCIUM FOLINATE [Suspect]
     Active Substance: LEUCOVORIN CALCIUM
     Dosage: THERAPY DURATION: 1 MONTH 12 DAYS
     Route: 065
     Dates: start: 20181227, end: 20190207
  5. FLUOROURACIL. [Suspect]
     Active Substance: FLUOROURACIL
     Dosage: THERAPY DURATION: 1 MONTH 12 DAYS
     Route: 041
     Dates: start: 20181227, end: 20190207
  6. ZALTRAP [Suspect]
     Active Substance: ZIV-AFLIBERCEPT
     Route: 041
     Dates: start: 20181115, end: 20181129
  7. ZALTRAP [Suspect]
     Active Substance: ZIV-AFLIBERCEPT
     Dosage: THERAPY DURATION: 1 MONTH 12 DAYS
     Route: 041
     Dates: start: 20181227, end: 20190207
  8. FLUOROURACIL. [Suspect]
     Active Substance: FLUOROURACIL
     Indication: RECTAL CANCER
     Dosage: ONCE
     Route: 040
     Dates: start: 20181018, end: 20181018
  9. FLUOROURACIL. [Suspect]
     Active Substance: FLUOROURACIL
     Dosage: ONCE
     Route: 041
     Dates: start: 20181129, end: 20181129
  10. OXALIPLATIN. [Concomitant]
     Active Substance: OXALIPLATIN
     Indication: RECTAL CANCER
     Dates: start: 201704, end: 201810
  11. LEUCOVORIN. [Concomitant]
     Active Substance: LEUCOVORIN
     Indication: RECTAL CANCER
     Dates: start: 201704, end: 201810
  12. FLUOROURACIL. [Suspect]
     Active Substance: FLUOROURACIL
     Dosage: ONCE
     Route: 041
     Dates: start: 20181115, end: 20181115
  13. IRINOTECAN [Suspect]
     Active Substance: IRINOTECAN
     Dosage: ONCE
     Route: 065
     Dates: start: 20181129, end: 20181129
  14. IRINOTECAN [Suspect]
     Active Substance: IRINOTECAN
     Dosage: THERAPY DURATION: 1 MONTH 12 DAYS
     Route: 065
     Dates: start: 20181227, end: 20190207
  15. LIXIANA [Suspect]
     Active Substance: EDOXABAN TOSYLATE
     Indication: PRODUCT USED FOR UNKNOWN INDICATION
     Route: 065
  16. CALCIUM FOLINATE [Suspect]
     Active Substance: LEUCOVORIN CALCIUM
     Dosage: ONCE
     Route: 065
     Dates: start: 20181115, end: 20181115
  17. DEXAMETHASONE SODIUM PHOSPHATE. [Suspect]
     Active Substance: DEXAMETHASONE SODIUM PHOSPHATE
     Indication: PRODUCT USED FOR UNKNOWN INDICATION
     Route: 065
  18. ZALTRAP [Suspect]
     Active Substance: ZIV-AFLIBERCEPT
     Indication: RECTAL CANCER
     Dosage: ONCE
     Route: 041
     Dates: start: 20181018, end: 20181018
  19. IRINOTECAN [Suspect]
     Active Substance: IRINOTECAN
     Indication: RECTAL CANCER
     Dosage: ONCE
     Route: 065
     Dates: start: 20181018, end: 20181018
  20. IRINOTECAN [Suspect]
     Active Substance: IRINOTECAN
     Dosage: ONCE
     Route: 065
     Dates: start: 20181115, end: 20181115
  21. FLUOROURACIL. [Suspect]
     Active Substance: FLUOROURACIL
     Dosage: ONCE
     Route: 041
     Dates: start: 20181018, end: 20181018
  22. 5-FU [Concomitant]
     Active Substance: FLUOROURACIL
     Indication: RECTAL CANCER
     Dates: start: 201704, end: 201810

REACTIONS (6)
  - Constipation [Recovering/Resolving]
  - Epistaxis [Recovering/Resolving]
  - Lymphoedema [Recovering/Resolving]
  - Neutrophil count decreased [Recovering/Resolving]
  - Condition aggravated [Recovering/Resolving]
  - Pyrexia [Recovering/Resolving]

NARRATIVE: CASE EVENT DATE: 20181022
